FAERS Safety Report 5056276-3 (Version None)
Quarter: 2006Q3

REPORT INFORMATION
  Report Type: 
  Country: None (occurrence: None)
  Receive Date: 20060717
  Receipt Date: 20060706
  Transmission Date: 20061208
  Serious: Yes (Life-Threatening)
  Sender: FDA-Public Use
  Company Number: GXKR2006DK03939

PATIENT
  Age: 32 Year
  Sex: Male
  Weight: 97 kg

DRUGS (4)
  1. CITALOPRAM (NGX)(CITALOPRAM) TABLET 20MG [Suspect]
     Indication: DEPRESSION
     Dosage: 20 MG, QD, ORAL
     Route: 048
  2. ESCITALOPRAM (ESCITALOPRAM) TABLET, 10MG [Suspect]
     Indication: DEPRESSION
     Dosage: 10 MG, QD, ORAL
     Route: 048
  3. INSULIN INJECTION (ISOPHANE INSULIN) INJECTION [Concomitant]
  4. ISOPHANE INSULIN (ISOPHANE INSULIN) [Concomitant]

REACTIONS (3)
  - BLOOD GLUCOSE INCREASED [None]
  - DIABETIC COMPLICATION [None]
  - SENSORY LOSS [None]
